FAERS Safety Report 10035785 (Version 1)
Quarter: 2014Q1

REPORT INFORMATION
  Report Type: Report from Study
  Country: ID (occurrence: ID)
  Receive Date: 20140325
  Receipt Date: 20140325
  Transmission Date: 20141002
  Serious: Yes (Hospitalization, Other)
  Sender: FDA-Public Use
  Company Number: ID-ROCHE-1366626

PATIENT
  Age: 92 Year
  Sex: Female

DRUGS (1)
  1. BONVIVA [Suspect]
     Indication: OSTEOPOROSIS
     Route: 065
     Dates: start: 20130717

REACTIONS (3)
  - Convulsion [Recovering/Resolving]
  - Lung infection [Recovering/Resolving]
  - Urinary tract disorder [Unknown]
